FAERS Safety Report 6022430-7 (Version None)
Quarter: 2008Q4

REPORT INFORMATION
  Report Type: 
  Country: None (occurrence: None)
  Receive Date: 20081221
  Receipt Date: 20081221
  Transmission Date: 20090506
  Serious: Yes (Other)
  Sender: FDA-Public Use
  Company Number: None

PATIENT
  Age: 47 Year
  Sex: Female
  Weight: 88.4514 kg

DRUGS (2)
  1. NUVARING [Suspect]
     Indication: AFFECTIVE DISORDER
     Dosage: ONE MONTHLY VAG
     Route: 067
     Dates: start: 20080410, end: 20081101
  2. NUVARING [Suspect]
     Indication: MENORRHAGIA
     Dosage: ONE MONTHLY VAG
     Route: 067
     Dates: start: 20080410, end: 20081101

REACTIONS (1)
  - BACTERIAL INFECTION [None]
